FAERS Safety Report 21456106 (Version 2)
Quarter: 2022Q4

REPORT INFORMATION
  Report Type: Report from Study
  Country: BR (occurrence: BR)
  Receive Date: 20221014
  Receipt Date: 20221026
  Transmission Date: 20230113
  Serious: Yes (Hospitalization)
  Sender: FDA-Public Use
  Company Number: BR-JNJFOC-20221013770

PATIENT
  Sex: Male
  Weight: 38 kg

DRUGS (5)
  1. REMICADE [Suspect]
     Active Substance: INFLIXIMAB
     Indication: Crohn^s disease
     Dosage: START DATE REPORTED AS 22-JUN-2019 AND 05-MAR-2019
     Route: 041
     Dates: start: 2019
  2. PREDNISOLONE [Concomitant]
     Active Substance: PREDNISOLONE
  3. URSODIOL [Concomitant]
     Active Substance: URSODIOL
  4. MESALAMINE [Concomitant]
     Active Substance: MESALAMINE
  5. AZATHIOPRINE [Concomitant]
     Active Substance: AZATHIOPRINE

REACTIONS (2)
  - Odontogenic cyst [Unknown]
  - Off label use [Unknown]
